FAERS Safety Report 21672587 (Version 1)
Quarter: 2022Q4

REPORT INFORMATION
  Report Type: Spontaneous
  Country: US (occurrence: None)
  Receive Date: 20221201
  Receipt Date: 20221201
  Transmission Date: 20230112
  Serious: Yes (Death)
  Sender: FDA-Public Use
  Company Number: None

PATIENT
  Age: 78 Year
  Sex: Male

DRUGS (11)
  1. MYFORTIC [Suspect]
     Active Substance: MYCOPHENOLATE SODIUM
     Indication: Renal transplant
     Dosage: FREQUENCY : TWICE A DAY;?
     Route: 048
     Dates: start: 20220207, end: 20221130
  2. FERROUS SULFATE [Concomitant]
     Active Substance: FERROUS SULFATE
  3. ASPIRIN EC LOW DOSE [Concomitant]
  4. AMIODARONE [Concomitant]
     Active Substance: AMIODARONE
  5. B-COMPLEX [Concomitant]
  6. CINACALCET [Concomitant]
     Active Substance: CINACALCET
  7. LIPITOR [Concomitant]
     Active Substance: ATORVASTATIN CALCIUM
  8. SYNTHROID [Concomitant]
     Active Substance: LEVOTHYROXINE SODIUM
  9. ULTRAM [Concomitant]
     Active Substance: TRAMADOL HYDROCHLORIDE
  10. VITAMIN C [Concomitant]
     Active Substance: ASCORBIC ACID
  11. VITAMIN D [Concomitant]
     Active Substance: VITAMIN D NOS

REACTIONS (1)
  - Infection [None]

NARRATIVE: CASE EVENT DATE: 20221130
